FAERS Safety Report 16015761 (Version 2)
Quarter: 2019Q1

REPORT INFORMATION
  Report Type: Spontaneous
  Country: JP (occurrence: JP)
  Receive Date: 20190228
  Receipt Date: 20190327
  Transmission Date: 20190418
  Serious: Yes (Life-Threatening, Hospitalization, Other)
  Sender: FDA-Public Use
  Company Number: JP-SAKK-2019SA051696AA

PATIENT
  Age: 49 Year
  Sex: Male

DRUGS (2)
  1. MITICURE [Concomitant]
     Indication: RHINITIS ALLERGIC
     Dosage: 10000 JAU, QD
     Route: 060
     Dates: start: 20181122
  2. DUPIXENT [Suspect]
     Active Substance: DUPILUMAB
     Indication: DERMATITIS ATOPIC
     Dosage: 300 MG, QOW
     Route: 058
     Dates: start: 20180817

REACTIONS (4)
  - Cerebral infarction [Recovered/Resolved]
  - Peripheral paralysis [Recovered/Resolved]
  - Eosinophil percentage increased [Unknown]
  - Transient ischaemic attack [Recovered/Resolved]

NARRATIVE: CASE EVENT DATE: 20190101
